FAERS Safety Report 25755527 (Version 2)
Quarter: 2025Q3

REPORT INFORMATION
  Report Type: Spontaneous
  Country: US (occurrence: US)
  Receive Date: 20250903
  Receipt Date: 20250930
  Transmission Date: 20251021
  Serious: No
  Sender: ROCHE
  Company Number: US-ROCHE-10000374489

PATIENT
  Sex: Female

DRUGS (1)
  1. VABYSMO [Suspect]
     Active Substance: FARICIMAB-SVOA
     Indication: Product used for unknown indication
     Route: 050

REACTIONS (4)
  - Keratic precipitates [Recovered/Resolved]
  - Anterior chamber cell [Unknown]
  - Photopsia [Unknown]
  - Visual impairment [Unknown]
